FAERS Safety Report 5599461-4 (Version None)
Quarter: 2007Q4

REPORT INFORMATION
  Report Type: 
  Country: None (occurrence: None)
  Receive Date: 20071226
  Receipt Date: 20070525
  Transmission Date: 20080405
  Serious: Yes (Other)
  Sender: FDA-Public Use
  Company Number: PHEH2005US11596

PATIENT
  Age: 53 Year
  Sex: Female
  Weight: 68 kg

DRUGS (16)
  1. VIVELLE [Suspect]
     Indication: HORMONE REPLACEMENT THERAPY
     Dosage: 0.05MG, TRANSDERMAL
     Route: 062
     Dates: start: 19981230
  2. VIVELLE [Suspect]
     Dosage: 0.025MG, TOPICAL
     Route: 062
  3. PROMETRIUM [Suspect]
     Indication: HORMONE REPLACEMENT THERAPY
     Dosage: 100MG
     Dates: start: 19981230
  4. ESTRADIOL [Suspect]
     Indication: MENOPAUSE
     Dosage: 0.5MG
     Dates: start: 19990312
  5. ESTRADIOL [Suspect]
     Indication: HORMONE REPLACEMENT THERAPY
  6. ALDACTONE [Concomitant]
  7. PAXIL [Concomitant]
  8. WELLBUTRIN [Concomitant]
  9. PROZAC [Concomitant]
  10. DYAZIDE [Concomitant]
  11. ZYBAN [Concomitant]
  12. HYDROCHLOROTHIAZIDE [Concomitant]
  13. SPIRONOLACTONE [Concomitant]
  14. XENICAL [Concomitant]
  15. MIACALCIN [Concomitant]
  16. AROMASIN [Concomitant]

REACTIONS (14)
  - ABDOMINAL DISTENSION [None]
  - ANXIETY [None]
  - BREAST CANCER [None]
  - BREAST PAIN [None]
  - INTERVERTEBRAL DISC DISORDER [None]
  - LYMPH NODE FIBROSIS [None]
  - LYMPHOEDEMA [None]
  - MALIGNANT BREAST LUMP REMOVAL [None]
  - MUSCULOSKELETAL PAIN [None]
  - OEDEMA [None]
  - OEDEMA PERIPHERAL [None]
  - OSTEOARTHRITIS [None]
  - OSTEOPENIA [None]
  - RADIOTHERAPY [None]
